FAERS Safety Report 4563681-8 (Version None)
Quarter: 2005Q1

REPORT INFORMATION
  Report Type: 
  Country: None (occurrence: None)
  Receive Date: 20050124
  Receipt Date: 20050117
  Transmission Date: 20050727
  Serious: Yes (Hospitalization)
  Sender: FDA-Public Use
  Company Number: 2005AL000213

PATIENT
  Age: 51 Year
  Sex: Male

DRUGS (6)
  1. SERAX [Suspect]
     Dosage: PO
     Route: 048
     Dates: end: 20041107
  2. STABLON [Concomitant]
  3. LASILIX [Concomitant]
  4. ALDACTONE [Concomitant]
  5. EUPANTOL [Concomitant]
  6. BISOPROLOL FUMARATE [Concomitant]

REACTIONS (3)
  - COMA [None]
  - HEMIPARESIS [None]
  - OVERDOSE [None]
